FAERS Safety Report 10202722 (Version 1)
Quarter: 2014Q2

REPORT INFORMATION
  Report Type: Spontaneous
  Country: BE (occurrence: BE)
  Receive Date: 20140528
  Receipt Date: 20140528
  Transmission Date: 20141212
  Serious: Yes (Death, Other)
  Sender: FDA-Public Use
  Company Number: BE-PFIZER INC-2014145240

PATIENT
  Age: 38 Year
  Sex: Female

DRUGS (2)
  1. VENLAFAXINE HCL [Suspect]
     Dosage: UNK
  2. VERAPAMIL [Suspect]
     Dosage: UNK

REACTIONS (3)
  - Overdose [Fatal]
  - Multi-organ failure [Fatal]
  - Cardiogenic shock [Unknown]
